FAERS Safety Report 8529747-2 (Version None)
Quarter: 2012Q3

REPORT INFORMATION
  Report Type: 
  Country: None (occurrence: None)
  Receive Date: 20120723
  Receipt Date: 20120710
  Transmission Date: 20120928
  Serious: Yes (Other)
  Sender: FDA-Public Use
  Company Number: JP-B.I. PHARMACEUTICALS,INC./RIDGEFIELD-2012-BP-15852YA

PATIENT
  Sex: Male

DRUGS (3)
  1. BETANIS (MIRABEGRON) [Suspect]
     Dosage: 50 MG
     Route: 048
     Dates: start: 20120515, end: 20120521
  2. TAMSULOSIN HCL [Suspect]
     Route: 048
  3. BETANIS (MIRABEGRON) [Suspect]
     Dosage: 25 MG
     Route: 048
     Dates: start: 20120522

REACTIONS (2)
  - INTENTIONAL DRUG MISUSE [None]
  - FAECES DISCOLOURED [None]
